FAERS Safety Report 16662336 (Version 1)
Quarter: 2019Q3

REPORT INFORMATION
  Report Type: Other
  Country: ES (occurrence: ES)
  Receive Date: 20190802
  Receipt Date: 20190802
  Transmission Date: 20191004
  Serious: Yes (Other)
  Sender: FDA-Public Use
  Company Number: ES-APOTEX-2019AP019285

PATIENT
  Age: 86 Year
  Sex: Male

DRUGS (5)
  1. ATORVASTATIN [Suspect]
     Active Substance: ATORVASTATIN
     Indication: CAROTID ARTERY STENOSIS
     Dosage: 80 MG, QD
     Route: 048
     Dates: start: 20180205
  2. CLOPIDOGREL STADA /01220704/ [Suspect]
     Active Substance: CLOPIDOGREL BESILATE
     Indication: CAROTID ARTERY STENOSIS
     Dosage: 75 MG, QD
     Route: 048
     Dates: start: 20180205
  3. EZETIMIBA [Suspect]
     Active Substance: EZETIMIBE
     Indication: CAROTID ARTERY STENOSIS
     Dosage: 10 MG, QD
     Route: 048
     Dates: start: 20180205
  4. ELIQUIS [Suspect]
     Active Substance: APIXABAN
     Indication: CAROTID ARTERY STENOSIS
     Dosage: 5 MG, UNK, EVERY 12 HOUR
     Route: 048
     Dates: start: 20181203
  5. ESOMEPRAZOL STADA /01479302/ [Suspect]
     Active Substance: ESOMEPRAZOLE MAGNESIUM
     Indication: PROPHYLAXIS
     Dosage: 20 MG, QD
     Route: 048
     Dates: start: 20180205

REACTIONS (1)
  - Musculoskeletal pain [Not Recovered/Not Resolved]

NARRATIVE: CASE EVENT DATE: 20190529
